FAERS Safety Report 23587995 (Version 1)
Quarter: 2024Q1

REPORT INFORMATION
  Report Type: Spontaneous
  Country: US (occurrence: None)
  Receive Date: 20240301
  Receipt Date: 20240301
  Transmission Date: 20240409
  Serious: Yes (Other)
  Sender: FDA-Public Use
  Company Number: 2024A052207

PATIENT

DRUGS (1)
  1. TEZSPIRE [Suspect]
     Active Substance: TEZEPELUMAB-EKKO
     Indication: Asthma

REACTIONS (16)
  - Noninfective encephalitis [Unknown]
  - Post-acute COVID-19 syndrome [Unknown]
  - Hypoaesthesia oral [Unknown]
  - Headache [Unknown]
  - Insomnia [Unknown]
  - Inflammation [Unknown]
  - Influenza like illness [Unknown]
  - Arthralgia [Unknown]
  - Myalgia [Unknown]
  - Asthenia [Unknown]
  - Impaired work ability [Unknown]
  - Dyspnoea [Unknown]
  - Hyperhidrosis [Unknown]
  - Asthma [Unknown]
  - Malaise [Unknown]
  - Product dose omission issue [Unknown]
